FAERS Safety Report 9776329 (Version 1)
Quarter: 2013Q4

REPORT INFORMATION
  Report Type: Spontaneous
  Country: FR (occurrence: FR)
  Receive Date: 20131220
  Receipt Date: 20131220
  Transmission Date: 20140711
  Serious: Yes (Hospitalization)
  Sender: FDA-Public Use
  Company Number: FR-PFIZER INC-2013360224

PATIENT
  Age: 24 Year
  Sex: Female

DRUGS (9)
  1. SOLU-MEDROL [Suspect]
     Dosage: UNK
     Dates: start: 20131007
  2. COUMADINE [Suspect]
     Dosage: UNK
     Dates: start: 20131014, end: 20131028
  3. INEXIUM /01479302/ [Suspect]
     Dosage: UNK
     Dates: start: 20131015, end: 20131028
  4. CLAFORAN [Suspect]
     Indication: LUNG INFECTION
     Dosage: UNK
     Dates: start: 20131006
  5. VANCOMYCIN [Concomitant]
     Indication: STAPHYLOCOCCAL INFECTION
     Dosage: UNK
     Route: 040
     Dates: start: 20131010, end: 20131014
  6. LANSOPRAZOLE [Concomitant]
     Dosage: UNK
     Dates: start: 20131010, end: 20131014
  7. AXEPIM [Concomitant]
     Dosage: 2 G, UNK
     Dates: start: 20131011
  8. SYNTOCINON [Concomitant]
     Dosage: UNK
     Dates: start: 20131011
  9. TARDYFERON [Concomitant]
     Dosage: 1 DF, DAILY
     Dates: start: 201307

REACTIONS (2)
  - Toxic skin eruption [Recovered/Resolved]
  - Eosinophilia [Unknown]
